FAERS Safety Report 11887069 (Version 1)
Quarter: 2016Q1

REPORT INFORMATION
  Report Type: Spontaneous
  Country: None (occurrence: US)
  Receive Date: 20160104
  Receipt Date: 20160104
  Transmission Date: 20160526
  Serious: No
  Sender: FDA-Public Use
  Company Number: US-ALLERGAN-1501545US

PATIENT
  Sex: Male

DRUGS (2)
  1. KETOROLAC [Suspect]
     Active Substance: KETOROLAC\KETOROLAC TROMETHAMINE
     Indication: POSTOPERATIVE CARE
  2. KETOROLAC [Suspect]
     Active Substance: KETOROLAC\KETOROLAC TROMETHAMINE
     Indication: PREOPERATIVE CARE
     Dosage: UNKNOWN
     Route: 047
     Dates: start: 201411

REACTIONS (5)
  - Visual acuity reduced [Not Recovered/Not Resolved]
  - Pyrexia [Unknown]
  - Eye infection [Unknown]
  - Headache [Unknown]
  - Eye inflammation [Unknown]

NARRATIVE: CASE EVENT DATE: 2014
